FAERS Safety Report 9530979 (Version 1)
Quarter: 2013Q3

REPORT INFORMATION
  Report Type: Spontaneous
  Country: CO (occurrence: CO)
  Receive Date: 20130918
  Receipt Date: 20130918
  Transmission Date: 20140515
  Serious: Yes (Other)
  Sender: FDA-Public Use
  Company Number: CO-ASTRAZENECA-2013SE69143

PATIENT
  Age: 32 Year
  Sex: Female

DRUGS (1)
  1. VIMOVO [Suspect]
     Dosage: 500/20 NAPROXENO/ESOMEPRAZOL
     Route: 048
     Dates: start: 20130812

REACTIONS (2)
  - Laryngospasm [Recovered/Resolved]
  - Rash [Recovered/Resolved]
